FAERS Safety Report 7340684-1 (Version None)
Quarter: 2011Q1

REPORT INFORMATION
  Report Type: 
  Country: None (occurrence: None)
  Receive Date: 20110309
  Receipt Date: 20110224
  Transmission Date: 20110831
  Serious: Yes (Hospitalization)
  Sender: FDA-Public Use
  Company Number: US-ROCHE-762250

PATIENT
  Sex: Female

DRUGS (2)
  1. TAXOL [Concomitant]
  2. HERCEPTIN [Suspect]
     Route: 065

REACTIONS (3)
  - NEUROPATHY PERIPHERAL [None]
  - INTRACRANIAL PRESSURE INCREASED [None]
  - HEADACHE [None]
